FAERS Safety Report 6892383-8 (Version None)
Quarter: 2010Q3

REPORT INFORMATION
  Report Type: 
  Country: None (occurrence: None)
  Receive Date: 20100731
  Receipt Date: 20080430
  Transmission Date: 20110219
  Serious: No
  Sender: FDA-Public Use
  Company Number: US-PFIZER INC-2008038193

PATIENT
  Age: 79 Year
  Sex: Female

DRUGS (2)
  1. FLAGYL [Suspect]
     Indication: CLOSTRIDIAL INFECTION
     Route: 048
     Dates: start: 20080131, end: 20080204
  2. VANCOMYCIN HCL [Suspect]
     Indication: CLOSTRIDIAL INFECTION
     Route: 048
     Dates: start: 20080201, end: 20080205

REACTIONS (2)
  - FLUSHING [None]
  - RASH GENERALISED [None]
